FAERS Safety Report 5920332-5 (Version None)
Quarter: 2008Q4

REPORT INFORMATION
  Report Type: 
  Country: None (occurrence: None)
  Receive Date: 20081016
  Receipt Date: 20081007
  Transmission Date: 20090506
  Serious: Yes (Other)
  Sender: FDA-Public Use
  Company Number: PHEH2008US08226

PATIENT
  Sex: Male
  Weight: 24.376 kg

DRUGS (2)
  1. FOCALIN XR [Suspect]
     Dosage: 5 MG, QD
     Route: 048
     Dates: start: 20080910, end: 20080910
  2. FOCALIN XR [Suspect]
     Dosage: 2.5 MG, UNK

REACTIONS (3)
  - CONDITION AGGRAVATED [None]
  - MYDRIASIS [None]
  - PSYCHOMOTOR HYPERACTIVITY [None]
